FAERS Safety Report 6159790-2 (Version None)
Quarter: 2009Q2

REPORT INFORMATION
  Report Type: 
  Country: None (occurrence: None)
  Receive Date: 20090420
  Receipt Date: 20090409
  Transmission Date: 20091009
  Serious: Yes (Other)
  Sender: FDA-Public Use
  Company Number: US-ELI_LILLY_AND_COMPANY-US200904002101

PATIENT
  Sex: Male

DRUGS (3)
  1. CYMBALTA [Suspect]
     Indication: FIBROMYALGIA
     Dosage: 120 MG, UNK
     Dates: start: 20070101
  2. CYMBALTA [Suspect]
     Dosage: 30 MG, UNK
  3. LYRICA [Concomitant]

REACTIONS (1)
  - RENAL DISORDER [None]
